FAERS Safety Report 15334280 (Version 2)
Quarter: 2019Q2

REPORT INFORMATION
  Report Type: Spontaneous
  Country: US (occurrence: US)
  Receive Date: 20180830
  Receipt Date: 20190423
  Transmission Date: 20190711
  Serious: No
  Sender: FDA-Public Use
  Company Number: US-PFIZER INC-2016545612

PATIENT
  Age: 55 Year
  Sex: Female
  Weight: 104 kg

DRUGS (21)
  1. NORVASC [Concomitant]
     Active Substance: AMLODIPINE BESYLATE
     Indication: BLOOD PRESSURE ABNORMAL
     Dosage: 5 MG, ONCE DAILY
     Route: 048
     Dates: start: 20160916
  2. LISINOPRIL + HIDROCLOROTIAZIDA [Concomitant]
     Active Substance: HYDROCHLOROTHIAZIDE\LISINOPRIL
     Indication: BLOOD PRESSURE ABNORMAL
     Dosage: 1 DF, ONCE DAILY
     Route: 048
     Dates: start: 20151109
  3. TRAZODONE HYDROCHLORIDE. [Concomitant]
     Active Substance: TRAZODONE HYDROCHLORIDE
     Indication: SLEEP DISORDER
     Dosage: 50 MG, AS NEEDED (AT BEDTIME)
     Route: 048
     Dates: start: 20130115
  4. ALBUTEROL SULFATE. [Concomitant]
     Active Substance: ALBUTEROL SULFATE
     Dosage: UNK
     Dates: start: 20130115
  5. EQUATE ALLERGY RELIEF [CETIRIZINE HYDROCHLORIDE] [Concomitant]
     Dosage: UNK
     Dates: start: 20140303
  6. ROBAXIN-750 [Concomitant]
     Indication: MUSCLE SPASMS
     Dosage: 750 MG, THRICE DAILY
     Route: 048
     Dates: start: 20141208
  7. VENTOLIN HFA [Concomitant]
     Active Substance: ALBUTEROL SULFATE
     Dosage: UNK
     Dates: start: 20130115
  8. ALEVE [Concomitant]
     Active Substance: NAPROXEN SODIUM
     Dosage: 220 MG, AS NEEDED
     Route: 048
     Dates: start: 20130115
  9. OPANA [Concomitant]
     Active Substance: OXYMORPHONE HYDROCHLORIDE
     Dosage: 20 MG, TWICE DAILY
     Route: 048
     Dates: start: 20141022
  10. LACTULOSE. [Concomitant]
     Active Substance: LACTULOSE
     Indication: ABNORMAL FAECES
     Dosage: 15 ML, ONCE DAILY
     Route: 048
     Dates: start: 20161117
  11. MOVANTIK [Concomitant]
     Active Substance: NALOXEGOL OXALATE
     Dosage: 25 MG, ONCE DAILY
     Route: 048
     Dates: start: 20161117
  12. TENS [Concomitant]
     Indication: SPONDYLITIS
  13. MOTRIN IB [Concomitant]
     Active Substance: IBUPROFEN
     Dosage: 200 MG, AS NEEDED
     Route: 048
     Dates: start: 20130115
  14. B COMPLETE [VITAMIN B COMPLEX] [Concomitant]
     Dosage: 1 DF, DAILY
     Dates: start: 20140623
  15. TENS [Concomitant]
     Indication: POST LAMINECTOMY SYNDROME
     Dosage: UNK
     Dates: start: 20140422
  16. LEVOXYL [Concomitant]
     Active Substance: LEVOTHYROXINE SODIUM
     Indication: THYROID DISORDER
     Dosage: 137 UG, ONCE DAILY
     Route: 048
     Dates: start: 20130115
  17. MIRALAX [Concomitant]
     Active Substance: POLYETHYLENE GLYCOL 3350
     Dosage: ONE-HALF DF TO 1 DF, EVERY OTHER DAY TO EVERY DAY
     Dates: start: 20150817
  18. PERCOCET [Concomitant]
     Active Substance: ACETAMINOPHEN\OXYCODONE HYDROCHLORIDE
     Indication: BREAKTHROUGH PAIN
     Dosage: 1 DF, AS NEEDED (TWICE DAILY)
     Route: 048
     Dates: start: 20140422
  19. TENS [Concomitant]
     Indication: SPINAL OSTEOARTHRITIS
  20. LYRICA [Suspect]
     Active Substance: PREGABALIN
     Indication: NEURALGIA
     Dosage: 100 MG, TWICE DAILY
     Route: 048
     Dates: start: 20160503
  21. AMITIZA [Concomitant]
     Active Substance: LUBIPROSTONE
     Dosage: 8 UG, TWICE DAILY
     Route: 048
     Dates: start: 20161117

REACTIONS (1)
  - Pain [Unknown]

NARRATIVE: CASE EVENT DATE: 201808
